FAERS Safety Report 18537991 (Version 1)
Quarter: 2020Q4

REPORT INFORMATION
  Report Type: Other
  Country: PT (occurrence: PT)
  Receive Date: 20201123
  Receipt Date: 20201123
  Transmission Date: 20210114
  Serious: Yes (Other)
  Sender: FDA-Public Use
  Company Number: PT-US-PROVELL PHARMACEUTICALS LLC-E2B_90081231

PATIENT
  Age: 19 Year
  Sex: Female

DRUGS (6)
  1. BROMOCRIPTINE MESILATE [Suspect]
     Active Substance: BROMOCRIPTINE
     Indication: PROLACTIN-PRODUCING PITUITARY TUMOUR
     Dosage: 20 MG, QD
  2. LEVOTHYROXINE SODIUM. [Suspect]
     Active Substance: LEVOTHYROXINE SODIUM
     Indication: HYPOTHYROIDISM
     Dosage: UNK, BID
  3. BROMOCRIPTINE MESILATE [Suspect]
     Active Substance: BROMOCRIPTINE
     Indication: DOPAMINERGIC DRUG THERAPY
     Dosage: 20 MG, QD
  4. CABERGOLINE. [Suspect]
     Active Substance: CABERGOLINE
     Indication: PROLACTIN-PRODUCING PITUITARY TUMOUR
     Dosage: 5 MG, QW
  5. CABERGOLINE. [Suspect]
     Active Substance: CABERGOLINE
     Indication: DOPAMINERGIC DRUG THERAPY
     Dosage: 5 MG, QW
  6. DESMOPRESSIN [Concomitant]
     Active Substance: DESMOPRESSIN
     Indication: DIABETES INSIPIDUS

REACTIONS (5)
  - Adrenocortical insufficiency acute [Recovering/Resolving]
  - Treatment noncompliance [Unknown]
  - Drug resistance [Unknown]
  - Drug ineffective [Unknown]
  - Primary hyperthyroidism [Recovering/Resolving]
